FAERS Safety Report 6681008-2 (Version None)
Quarter: 2010Q2

REPORT INFORMATION
  Report Type: 
  Country: None (occurrence: None)
  Receive Date: 20100414
  Receipt Date: 20100414
  Transmission Date: 20101027
  Serious: Yes (Hospitalization)
  Sender: FDA-Public Use
  Company Number: DE-ABBOTT-10P-062-0636676-00

PATIENT
  Sex: Male

DRUGS (2)
  1. HUMIRA [Suspect]
     Indication: CROHN'S DISEASE
     Route: 058
     Dates: start: 20081107
  2. ANALGETIC DRUG (NOT SPECIFIED) [Concomitant]
     Indication: PAIN

REACTIONS (3)
  - ILL-DEFINED DISORDER [None]
  - PERICARDITIS [None]
  - PERITONITIS [None]
